FAERS Safety Report 12173949 (Version 1)
Quarter: 2016Q1

REPORT INFORMATION
  Report Type: Spontaneous
  Country: US (occurrence: US)
  Receive Date: 20160314
  Receipt Date: 20160314
  Transmission Date: 20160526
  Serious: Yes (Other)
  Sender: FDA-Public Use
  Company Number: US-THE MEDICINES COMPANY-US-MDCO-15-00370

PATIENT
  Age: 60 Year
  Sex: Female
  Weight: 85.9 kg

DRUGS (2)
  1. RECOTHROM [Suspect]
     Active Substance: THROMBIN ALFA
     Indication: ANTITHROMBIN III DEFICIENCY
     Route: 040
     Dates: start: 20150721, end: 20150721
  2. HEPARIN [Concomitant]
     Active Substance: HEPARIN SODIUM
     Indication: ANTICOAGULANT THERAPY
     Dosage: NOT REPORTED
     Dates: start: 20150721

REACTIONS (3)
  - Thrombosis in device [Recovered/Resolved]
  - Incorrect route of drug administration [Recovered/Resolved]
  - Wrong drug administered [Recovered/Resolved]

NARRATIVE: CASE EVENT DATE: 20150721
